FAERS Safety Report 9495116 (Version 1)
Quarter: 2013Q3

REPORT INFORMATION
  Report Type: Spontaneous
  Country: PT (occurrence: PT)
  Receive Date: 20130903
  Receipt Date: 20130903
  Transmission Date: 20140515
  Serious: Yes (Death)
  Sender: FDA-Public Use
  Company Number: PT-SANOFI-AVENTIS-2013SA086089

PATIENT
  Age: 51 Year
  Sex: Male

DRUGS (2)
  1. LANTUS [Suspect]
     Indication: TYPE 1 DIABETES MELLITUS
     Dosage: STRENGTH: 100 IU/ML DOSE:30 UNIT(S)
     Route: 058
     Dates: end: 201306
  2. HUMALOG [Concomitant]
     Indication: TYPE 1 DIABETES MELLITUS
     Route: 058

REACTIONS (2)
  - Cardiac disorder [Fatal]
  - Hypoglycaemia [Unknown]
